FAERS Safety Report 7275663-6 (Version None)
Quarter: 2011Q1

REPORT INFORMATION
  Report Type: 
  Country: None (occurrence: None)
  Receive Date: 20110204
  Receipt Date: 20101206
  Transmission Date: 20110831
  Serious: No
  Sender: FDA-Public Use
  Company Number: US-BAYER-2010-001616

PATIENT
  Sex: Male
  Weight: 113 kg

DRUGS (2)
  1. ALEVE (CAPLET) [Suspect]
     Indication: HEADACHE
     Dosage: 1 DF, BID
     Route: 048
     Dates: start: 20101108, end: 20101108
  2. PHILLIPS' MILK OF MAGNESIA LIQUID CHERRY [Suspect]
     Dosage: UNK

REACTIONS (2)
  - CONSTIPATION [None]
  - HEADACHE [None]
